FAERS Safety Report 23409831 (Version 2)
Quarter: 2024Q1

REPORT INFORMATION
  Report Type: Spontaneous
  Country: GR (occurrence: GR)
  Receive Date: 20240117
  Receipt Date: 20240118
  Transmission Date: 20240409
  Serious: Yes (Other)
  Sender: FDA-Public Use
  Company Number: GR-PFIZER INC-202400012596

PATIENT
  Sex: Female

DRUGS (1)
  1. METHYLPREDNISOLONE SODIUM SUCCINATE [Suspect]
     Active Substance: METHYLPREDNISOLONE SODIUM SUCCINATE
     Indication: Multiple sclerosis relapse prophylaxis
     Dosage: 1 G, DAILY (1G/DAY FOR 5 DAYS AND REPEAT ONE MONTH AFTER)
     Route: 042

REACTIONS (2)
  - Relapsing multiple sclerosis [Unknown]
  - Drug ineffective [Unknown]
